FAERS Safety Report 10136611 (Version 2)
Quarter: 2015Q1

REPORT INFORMATION
  Report Type: Other
  Country: US (occurrence: US)
  Receive Date: 20140429
  Receipt Date: 20150218
  Transmission Date: 20150720
  Serious: Yes (Hospitalization, Other)
  Sender: FDA-Public Use
  Company Number: US-GSKPPD-2014GSK038260

PATIENT
  Age: 65 Year
  Sex: Female

DRUGS (7)
  1. CATAPRES [Concomitant]
     Active Substance: CLONIDINE HYDROCHLORIDE
  2. LOVENOX [Concomitant]
     Active Substance: ENOXAPARIN SODIUM
     Route: 058
  3. MICROZIDE [Concomitant]
     Active Substance: HYDROCHLOROTHIAZIDE
  4. PRINIVIL [Concomitant]
     Active Substance: LISINOPRIL
  5. AVANDIA [Suspect]
     Active Substance: ROSIGLITAZONE MALEATE
     Indication: DIABETES MELLITUS
     Dosage: AVANDIA WAS NOT LISTED AMONG THE PATIENTS RECORDS REVIEWED.
     Route: 048
  6. ATACAND [Concomitant]
     Active Substance: CANDESARTAN CILEXETIL
  7. PLAVIX [Concomitant]
     Active Substance: CLOPIDOGREL BISULFATE

REACTIONS (1)
  - Cerebrovascular accident [Recovered/Resolved]

NARRATIVE: CASE EVENT DATE: 20091024
